FAERS Safety Report 9173943 (Version 1)
Quarter: 2013Q1

REPORT INFORMATION
  Report Type: Spontaneous
  Country: US (occurrence: None)
  Receive Date: 20130314
  Receipt Date: 20130314
  Transmission Date: 20140127
  Serious: Yes (Other)
  Sender: FDA-Public Use
  Company Number: 2013P1003283

PATIENT
  Sex: Female

DRUGS (1)
  1. LANOXIN [Suspect]

REACTIONS (2)
  - Neoplasm malignant [None]
  - Cardiac disorder [None]
